FAERS Safety Report 4572882-4 (Version None)
Quarter: 2005Q1

REPORT INFORMATION
  Report Type: 
  Country: None (occurrence: None)
  Receive Date: 20050208
  Receipt Date: 20040714
  Transmission Date: 20050727
  Serious: No
  Sender: FDA-Public Use
  Company Number: US-GLAXOSMITHKLINE-A0518214A

PATIENT
  Age: 51 Year
  Sex: Female

DRUGS (5)
  1. PAXIL [Suspect]
     Indication: DEPRESSION
     Dosage: 40MG PER DAY
     Route: 048
  2. SINUS MEDICATION [Concomitant]
  3. ZANTAC [Concomitant]
  4. ORAL CONTRACEPTIVES [Concomitant]
  5. ASPIRIN [Concomitant]

REACTIONS (1)
  - HEADACHE [None]
